FAERS Safety Report 8508830-1 (Version None)
Quarter: 2012Q3

REPORT INFORMATION
  Report Type: 
  Country: None (occurrence: None)
  Receive Date: 20120713
  Receipt Date: 20120711
  Transmission Date: 20120928
  Serious: Yes (Disabling)
  Sender: FDA-Public Use
  Company Number: US-PFIZER INC-2012125441

PATIENT
  Sex: Male
  Weight: 72.562 kg

DRUGS (6)
  1. SERTRALINE HYDROCHLORIDE [Suspect]
     Dosage: UNK
     Dates: start: 20010101
  2. ZOLOFT [Suspect]
     Indication: DEPRESSION
     Dosage: 50 MG, 1X/DAY
     Route: 048
     Dates: start: 19980101
  3. ZOLOFT [Suspect]
     Dosage: UNK
     Route: 048
  4. ZOLOFT [Suspect]
     Dosage: 100 MG, 1X/DAY
     Route: 048
  5. ZOLOFT [Suspect]
     Dosage: 50 MG, 1X/DAY
     Route: 048
  6. ZOLOFT [Suspect]
     Dosage: 150 MG, 1X/DAY
     Route: 048

REACTIONS (4)
  - ANXIETY [None]
  - PANIC ATTACK [None]
  - DRUG INEFFECTIVE [None]
  - DEPRESSION [None]
